FAERS Safety Report 9761752 (Version 1)
Quarter: 2013Q4

REPORT INFORMATION
  Report Type: Spontaneous
  Country: US (occurrence: US)
  Receive Date: 20131216
  Receipt Date: 20131216
  Transmission Date: 20140711
  Serious: No
  Sender: FDA-Public Use
  Company Number: US-BIOGENIDEC-2013BI107286

PATIENT
  Sex: Female
  Weight: 46 kg

DRUGS (5)
  1. TECFIDERA [Suspect]
     Indication: MULTIPLE SCLEROSIS
     Route: 048
  2. TECFIDERA [Suspect]
     Indication: MULTIPLE SCLEROSIS
     Route: 048
  3. VITAMIN D [Concomitant]
  4. CALCIUM 600 [Concomitant]
  5. ALBUTEROL [Concomitant]

REACTIONS (3)
  - Headache [Unknown]
  - Abdominal pain [Unknown]
  - Hot flush [Unknown]
